FAERS Safety Report 17886066 (Version 1)
Quarter: 2020Q2

REPORT INFORMATION
  Report Type: Spontaneous
  Country: GB (occurrence: GB)
  Receive Date: 20200611
  Receipt Date: 20200611
  Transmission Date: 20200714
  Serious: Yes (Other)
  Sender: FDA-Public Use
  Company Number: GB-MYLANLABS-2020M1055588

PATIENT
  Age: 70 Year
  Sex: Female
  Weight: 68.03 kg

DRUGS (6)
  1. MELOXICAM. [Concomitant]
     Active Substance: MELOXICAM
     Dosage: UNK
  2. VITAMIN D                          /07503901/ [Concomitant]
     Active Substance: VITAMIN D NOS
     Dosage: UNK
  3. CODEINE [Concomitant]
     Active Substance: CODEINE
     Dosage: UNK
  4. PARACETAMOL [Concomitant]
     Active Substance: ACETAMINOPHEN
     Dosage: UNK
  5. ATORVASTATIN [Suspect]
     Active Substance: ATORVASTATIN
     Indication: BLOOD CHOLESTEROL
     Dosage: 20 MILLIGRAM, QD
     Route: 048
     Dates: start: 201910, end: 20200520
  6. SOLIFENACIN [Concomitant]
     Active Substance: SOLIFENACIN
     Dosage: UNK

REACTIONS (2)
  - Vision blurred [Not Recovered/Not Resolved]
  - Alopecia [Not Recovered/Not Resolved]
